FAERS Safety Report 5029892-2 (Version None)
Quarter: 2006Q2

REPORT INFORMATION
  Report Type: 
  Country: None (occurrence: None)
  Receive Date: 20060620
  Receipt Date: 20060531
  Transmission Date: 20061013
  Serious: Yes (Life-Threatening, Other)
  Sender: FDA-Public Use
  Company Number: 2006AP02458

PATIENT
  Age: 62 Year
  Sex: Female
  Weight: 48 kg

DRUGS (6)
  1. PROPOFOL [Suspect]
     Indication: INDUCTION OF ANAESTHESIA
     Route: 065
  2. ISOFLURANE [Concomitant]
     Indication: ANAESTHESIA
  3. VECURONIUM BROMIDE [Concomitant]
  4. MORPHINE [Concomitant]
     Route: 008
  5. DOPAMINE [Concomitant]
  6. PROSTAGLANDIN E1 [Concomitant]

REACTIONS (6)
  - BLOOD PRESSURE DECREASED [None]
  - BLOOD PRESSURE SYSTOLIC DECREASED [None]
  - ELECTROCARDIOGRAM ST SEGMENT DEPRESSION [None]
  - PROCEDURAL COMPLICATION [None]
  - VENTRICULAR EXTRASYSTOLES [None]
  - VENTRICULAR TACHYCARDIA [None]
